FAERS Safety Report 4897606-2 (Version None)
Quarter: 2006Q1

REPORT INFORMATION
  Report Type: 
  Country: None (occurrence: None)
  Receive Date: 20060130
  Receipt Date: 20060130
  Transmission Date: 20060701
  Serious: No
  Sender: FDA-Public Use
  Company Number: None

PATIENT
  Sex: Male
  Weight: 58.9676 kg

DRUGS (3)
  1. ZOLOFT [Suspect]
     Indication: ANXIETY
     Dosage: 75 MG  DAILY  PO
     Route: 048
     Dates: start: 20040112, end: 20060128
  2. ZOLOFT [Suspect]
     Indication: DEPRESSION
     Dosage: 75 MG  DAILY  PO
     Route: 048
     Dates: start: 20040112, end: 20060128
  3. ZOLOFT [Suspect]
     Indication: VOMITING
     Dosage: 75 MG  DAILY  PO
     Route: 048
     Dates: start: 20040112, end: 20060128

REACTIONS (5)
  - ANXIETY [None]
  - CONDITION AGGRAVATED [None]
  - CONTRAINDICATION TO MEDICAL TREATMENT [None]
  - FATIGUE [None]
  - FEELING ABNORMAL [None]
